FAERS Safety Report 21871447 (Version 1)
Quarter: 2023Q1

REPORT INFORMATION
  Report Type: Spontaneous
  Country: US (occurrence: None)
  Receive Date: 20230113
  Receipt Date: 20230113
  Transmission Date: 20230417
  Serious: No
  Sender: FDA-Public Use
  Company Number: None

PATIENT
  Age: 79 Year
  Sex: Female
  Weight: 90.36 kg

DRUGS (15)
  1. CAPECITABINE [Suspect]
     Active Substance: CAPECITABINE
     Indication: Colon cancer
     Dosage: OTHER QUANTITY : 1500-2000MG;?FREQUENCY : TWICE A DAY;?
     Route: 048
     Dates: start: 202212, end: 202301
  2. ASCORBIC ACID [Concomitant]
     Active Substance: ASCORBIC ACID
  3. ATORVASTATIN [Concomitant]
     Active Substance: ATORVASTATIN
  4. FERROUS SULFATE [Concomitant]
     Active Substance: FERROUS SULFATE
  5. COENZVME [Concomitant]
  6. DIETARY SUPPLEMENT\UBIDECARENONE [Concomitant]
     Active Substance: DIETARY SUPPLEMENT\UBIDECARENONE
  7. FISH OIL [Concomitant]
     Active Substance: FISH OIL
  8. FUROSEMIDE [Concomitant]
     Active Substance: FUROSEMIDE
  9. HYDRALAZINE [Concomitant]
     Active Substance: HYDRALAZINE HYDROCHLORIDE
  10. LISINOPRIL [Concomitant]
     Active Substance: LISINOPRIL
  11. MULTIVITAMIN, [Concomitant]
  12. POTASSIUM CHLORIDE [Concomitant]
     Active Substance: POTASSIUM CHLORIDE
  13. PROCHLORPERAZINE [Concomitant]
     Active Substance: PROCHLORPERAZINE
  14. VITAMIN D3 [Concomitant]
     Active Substance: CHOLECALCIFEROL
  15. VITAMIN E [Concomitant]
     Active Substance: .ALPHA.-TOCOPHEROL

REACTIONS (2)
  - Disease progression [None]
  - Therapy cessation [None]
